FAERS Safety Report 8844815 (Version 1)
Quarter: 2012Q4

REPORT INFORMATION
  Report Type: Spontaneous
  Country: US (occurrence: None)
  Receive Date: 20121002
  Receipt Date: 20121002
  Transmission Date: 20130627
  Serious: Yes (Hospitalization)
  Sender: FDA-Public Use
  Company Number: RB-42308-2012

PATIENT
  Sex: Female

DRUGS (2)
  1. SUBOXONE [Suspect]
     Indication: DRUG DEPENDENCE
     Route: 060
     Dates: start: 20120213, end: 201204
  2. SUBOXONE [Suspect]
     Indication: DRUG DEPENDENCE
     Dosage: varied tapered doses Sublingual
     Route: 060
     Dates: start: 201204

REACTIONS (3)
  - Drug withdrawal syndrome [None]
  - Wrong technique in drug usage process [None]
  - Underdose [None]
